FAERS Safety Report 9458606 (Version 1)
Quarter: 2013Q3

REPORT INFORMATION
  Report Type: Spontaneous
  Country: GB (occurrence: GB)
  Receive Date: 20130814
  Receipt Date: 20130814
  Transmission Date: 20140515
  Serious: Yes (Other)
  Sender: FDA-Public Use
  Company Number: PHFR2013GB004650

PATIENT
  Age: 57 Year
  Sex: Male

DRUGS (1)
  1. TEGRETOL [Suspect]
     Dosage: 1000 MG, DAILY
     Route: 048

REACTIONS (2)
  - Gastric cancer [Not Recovered/Not Resolved]
  - Obstruction gastric [Not Recovered/Not Resolved]
